FAERS Safety Report 8902300 (Version 1)
Quarter: 2012Q4

REPORT INFORMATION
  Report Type: Report from Study
  Country: US (occurrence: US)
  Receive Date: 20121112
  Receipt Date: 20121112
  Transmission Date: 20130627
  Serious: Yes (Hospitalization)
  Sender: FDA-Public Use
  Company Number: US-US-EMD SERONO, INC.-7172613

PATIENT
  Sex: Female

DRUGS (2)
  1. REBIF [Suspect]
     Indication: MULTIPLE SCLEROSIS
     Route: 058
     Dates: start: 20020906
  2. ALEVE [Concomitant]
     Indication: PREMEDICATION

REACTIONS (4)
  - Incontinence [Recovering/Resolving]
  - Chest discomfort [Unknown]
  - Anxiety [Unknown]
  - Injection site erythema [Recovering/Resolving]
